FAERS Safety Report 19509628 (Version 1)
Quarter: 2021Q3

REPORT INFORMATION
  Report Type: Spontaneous
  Country: DE (occurrence: DE)
  Receive Date: 20210708
  Receipt Date: 20210708
  Transmission Date: 20211014
  Serious: Yes (Hospitalization)
  Sender: FDA-Public Use
  Company Number: DE-SA-2021SA214550

PATIENT
  Age: 75 Year
  Sex: Male
  Weight: 90 kg

DRUGS (7)
  1. NALOXONE;TILIDINE [Concomitant]
     Active Substance: NALOXONE HYDROCHLORIDE\TILIDINE HYDROCHLORIDE
     Dosage: 4 | 50 MG, REQUIREMENT,
     Route: 048
  2. ACETYLSALICYLIC ACID [Concomitant]
     Active Substance: ASPIRIN
     Dosage: 100 MG, QD (1?0?0?0, TABLETS)
     Route: 048
  3. INSULIN HUMAN ISOPHANE [Suspect]
     Active Substance: INSULIN HUMAN
     Dosage: 300 IU, ACCORDING TO THE SCHEME
     Route: 058
  4. GLIMEPIRIDE. [Suspect]
     Active Substance: GLIMEPIRIDE
     Dosage: 2 MG, BID (1?0?1?0, TABLETS)
     Route: 048
  5. METAMIZOL [Concomitant]
     Active Substance: METAMIZOLE SODIUM
     Dosage: 500 MG, QID (1?1?1?1, TABLETS)
     Route: 048
  6. RAMIPRIL. [Concomitant]
     Active Substance: RAMIPRIL
     Dosage: 5 MG, QD (1?0?0?0, TABLETS)
     Route: 048
  7. FOSTERA [Concomitant]
     Dosage: 2?0?0?0, METERED DOSE INHALER
     Route: 055

REACTIONS (4)
  - Musculoskeletal pain [Unknown]
  - Medication error [Unknown]
  - Pain in extremity [Unknown]
  - Wound secretion [Unknown]

NARRATIVE: CASE EVENT DATE: 20200510
